FAERS Safety Report 14962794 (Version 1)
Quarter: 2018Q2

REPORT INFORMATION
  Report Type: Spontaneous
  Country: US (occurrence: US)
  Receive Date: 20180601
  Receipt Date: 20180601
  Transmission Date: 20180711
  Serious: No
  Sender: FDA-Public Use
  Company Number: US-ASTRAZENECA-2018SE60978

PATIENT
  Sex: Female

DRUGS (1)
  1. BYDUREON [Suspect]
     Active Substance: EXENATIDE
     Route: 065

REACTIONS (5)
  - Injection site erythema [Unknown]
  - Injection site mass [Unknown]
  - Injection site vesicles [Unknown]
  - Wrong technique in device usage process [Unknown]
  - Needle issue [Unknown]
